FAERS Safety Report 13573682 (Version 2)
Quarter: 2017Q2

REPORT INFORMATION
  Report Type: Report from Study
  Country: JP (occurrence: JP)
  Receive Date: 20170523
  Receipt Date: 20170607
  Transmission Date: 20170830
  Serious: Yes (Hospitalization)
  Sender: FDA-Public Use
  Company Number: JP-PFIZER INC-2017224859

PATIENT
  Age: 66 Year
  Sex: Male

DRUGS (5)
  1. SERENACE [Suspect]
     Active Substance: HALOPERIDOL
     Indication: SCHIZOPHRENIA
     Dosage: 0.75 MG, DAILY (Q.D)
     Route: 048
     Dates: start: 20170106, end: 20170510
  2. ZIPRASIDONE HCL [Suspect]
     Active Substance: ZIPRASIDONE HYDROCHLORIDE
     Indication: SCHIZOPHRENIA
     Dosage: 80 MG/DAY (TWO CAPSULES B.I.D)
     Route: 048
     Dates: start: 20170118, end: 20170509
  3. AKINETON [Suspect]
     Active Substance: BIPERIDEN HYDROCHLORIDE
     Indication: PARKINSONISM
     Dosage: 3 MG, DAILY (T.I.D)
     Route: 048
     Dates: start: 20151208, end: 20170510
  4. ABILIT [Suspect]
     Active Substance: SULPIRIDE
     Dosage: 400 MG, DAILY
     Route: 048
     Dates: start: 20170515
  5. ABILIT [Suspect]
     Active Substance: SULPIRIDE
     Indication: SCHIZOPHRENIA
     Dosage: 600 MG, DAILY (T.I.D)
     Route: 048
     Dates: start: 20151208, end: 20170515

REACTIONS (1)
  - Shock [Recovered/Resolved]

NARRATIVE: CASE EVENT DATE: 20170510
